FAERS Safety Report 8886643 (Version 1)
Quarter: 2012Q4

REPORT INFORMATION
  Report Type: 
  Country: US (occurrence: US)
  Receive Date: 20121105
  Receipt Date: 20121105
  Transmission Date: 20130627
  Serious: No
  Sender: FDA-Public Use
  Company Number: US-PFIZER INC-2012274927

PATIENT
  Sex: Female

DRUGS (4)
  1. NEURONTIN [Suspect]
     Indication: POST CONCUSSION SYNDROME
     Dosage: UNK
     Dates: start: 201202
  2. CELEBREX [Suspect]
     Indication: KNEE ARTHRITIS
     Dosage: UNK, 2x/day
     Route: 048
     Dates: start: 201110
  3. CELEBREX [Suspect]
     Indication: MUSCULOSKELETAL DISORDER
  4. AMANTADINE [Concomitant]
     Indication: POST CONCUSSION SYNDROME
     Dosage: UNK

REACTIONS (4)
  - Drug ineffective [Unknown]
  - Dry skin [Recovered/Resolved]
  - Off label use [Unknown]
  - Urticaria [Unknown]
